FAERS Safety Report 25553530 (Version 1)
Quarter: 2025Q3

REPORT INFORMATION
  Report Type: Other
  Country: QA (occurrence: QA)
  Receive Date: 20250715
  Receipt Date: 20250715
  Transmission Date: 20251020
  Serious: Yes (Hospitalization, Other)
  Sender: APPCO PHARMA LLC
  Company Number: QA-Appco Pharma LLC-2180538

PATIENT
  Age: 53 Year
  Sex: Male

DRUGS (5)
  1. TIZANIDINE [Suspect]
     Active Substance: TIZANIDINE
     Indication: Pain management
  2. NIFEDIPINE [Interacting]
     Active Substance: NIFEDIPINE
  3. ONDANSETRON [Concomitant]
     Active Substance: ONDANSETRON
  4. KETOROLAC [Concomitant]
     Active Substance: KETOROLAC TROMETHAMINE
  5. Paracetamol 1000 mg [Concomitant]

REACTIONS (4)
  - Drug interaction [Unknown]
  - Hyperhidrosis [Unknown]
  - Hypotension [Recovered/Resolved]
  - Dizziness [Unknown]
